FAERS Safety Report 18124113 (Version 2)
Quarter: 2021Q1

REPORT INFORMATION
  Report Type: Report from Study
  Country: NL (occurrence: NL)
  Receive Date: 20200807
  Receipt Date: 20210323
  Transmission Date: 20210419
  Serious: Yes (Disabling, Other)
  Sender: FDA-Public Use
  Company Number: NL-MYLANLABS-2020M1069826

PATIENT
  Age: 13 Year
  Sex: Female

DRUGS (18)
  1. CASPOFUNGIN [Suspect]
     Active Substance: CASPOFUNGIN
     Indication: BRONCHOPULMONARY ASPERGILLOSIS
     Dosage: 1 MILLIGRAM, QD
  2. CASPOFUNGIN [Suspect]
     Active Substance: CASPOFUNGIN
     Indication: CEREBRAL ASPERGILLOSIS
     Dosage: 1 MILLIGRAM 3 TIMES/WEEK FOR 1 MONTH
  3. AMPHOTERICIN B. [Concomitant]
     Active Substance: AMPHOTERICIN B
     Indication: ASPERGILLUS INFECTION
     Dosage: UNK DAY 10 ? DAY 201
     Route: 042
  4. AMPHOTERICIN B. [Suspect]
     Active Substance: AMPHOTERICIN B
     Indication: CEREBRAL ASPERGILLOSIS
  5. VORICONAZOLE. [Concomitant]
     Active Substance: VORICONAZOLE
     Indication: CEREBRAL ASPERGILLOSIS
  6. FLUCYTOSINE. [Concomitant]
     Active Substance: FLUCYTOSINE
     Indication: CEREBRAL ASPERGILLOSIS
  7. CASPOFUNGIN [Concomitant]
     Active Substance: CASPOFUNGIN
     Indication: CEREBRAL ASPERGILLOSIS
  8. FLUCYTOSINE. [Concomitant]
     Active Substance: FLUCYTOSINE
     Indication: ASPERGILLUS INFECTION
  9. AMPHOTERICIN B. [Suspect]
     Active Substance: AMPHOTERICIN B
     Indication: BRONCHOPULMONARY ASPERGILLOSIS
     Dosage: 1 MILLIGRAM, QW INTRAVENTRICULAR ADMINISTRATION OF AMPHOTERICIN?B?LIPOSOMAL WAS..
  10. VORICONAZOLE. [Concomitant]
     Active Substance: VORICONAZOLE
     Indication: BRONCHOPULMONARY ASPERGILLOSIS
     Dosage: 8 MILLIGRAM/KILOGRAM DAY 0 ? DAY 10
     Route: 042
  11. AMPHOTERICIN B. [Concomitant]
     Active Substance: AMPHOTERICIN B
     Indication: BRONCHOPULMONARY ASPERGILLOSIS
     Dosage: 6 MILLIGRAM/KILOGRAM DAY 0 ? DAY 10
     Route: 042
  12. CASPOFUNGIN [Concomitant]
     Active Substance: CASPOFUNGIN
     Indication: ASPERGILLUS INFECTION
  13. VORICONAZOLE. [Concomitant]
     Active Substance: VORICONAZOLE
     Indication: ASPERGILLUS INFECTION
  14. FLUCYTOSINE. [Concomitant]
     Active Substance: FLUCYTOSINE
     Indication: BRONCHOPULMONARY ASPERGILLOSIS
     Dosage: 25 MILLIGRAM/KILOGRAM DAY 32 ? DAY 201
  15. CASPOFUNGIN [Suspect]
     Active Substance: CASPOFUNGIN
     Indication: ASPERGILLUS INFECTION
     Dosage: 0.5 MILLIGRAM 3 TIMES/WEEK THEREAFTER
  16. AMPHOTERICIN B. [Suspect]
     Active Substance: AMPHOTERICIN B
     Indication: ASPERGILLUS INFECTION
  17. CASPOFUNGIN [Concomitant]
     Active Substance: CASPOFUNGIN
     Indication: BRONCHOPULMONARY ASPERGILLOSIS
     Dosage: 70 MILLIGRAM, QD DAY 10 ? DAY 201
     Route: 042
  18. AMPHOTERICIN B. [Concomitant]
     Active Substance: AMPHOTERICIN B
     Indication: CEREBRAL ASPERGILLOSIS

REACTIONS (8)
  - Muscle spasticity [Unknown]
  - Headache [Recovered/Resolved]
  - Product use issue [Unknown]
  - Off label use [Unknown]
  - Frontotemporal dementia [Unknown]
  - Toxicity to various agents [Unknown]
  - Laboratory test abnormal [Unknown]
  - Epilepsy [Unknown]
